FAERS Safety Report 10285118 (Version 1)
Quarter: 2014Q3

REPORT INFORMATION
  Report Type: Spontaneous
  Country: US (occurrence: US)
  Receive Date: 20140708
  Receipt Date: 20140708
  Transmission Date: 20150326
  Serious: Yes (Other)
  Sender: FDA-Public Use
  Company Number: US-PFIZER INC-2014185288

PATIENT
  Age: 66 Year
  Sex: Male

DRUGS (7)
  1. CIALIS [Concomitant]
     Active Substance: TADALAFIL
     Dosage: 5 MG, 1X/DAY
     Route: 048
  2. ASPIRIN. [Concomitant]
     Active Substance: ASPIRIN
     Dosage: 81 MG, 1X/DAY (QPM-PC)
     Route: 048
  3. LIPITOR [Suspect]
     Active Substance: ATORVASTATIN CALCIUM
     Indication: HYPERLIPIDAEMIA
     Dosage: 40 MG, 1X/DAY
     Route: 048
     Dates: end: 20140130
  4. VITAMIN D3 [Concomitant]
     Active Substance: CHOLECALCIFEROL
     Dosage: 5000 UNITS, 1 TAB, 1X/DAY
     Route: 048
  5. RHINOCORT [Concomitant]
     Active Substance: BUDESONIDE
     Dosage: 32 UG, 1X/DAY (1 SPRAY EACH NARES QD)
  6. AXIRON [Concomitant]
     Active Substance: TESTOSTERONE
     Dosage: 3 ACTUATIONS PER DAY (90 MG) TOPICAL TO THE AXILLA
     Route: 061
  7. TRIAMCINOLONE [Concomitant]
     Active Substance: TRIAMCINOLONE
     Indication: RASH
     Dosage: 1 DF, 2X/DAY PRN

REACTIONS (1)
  - Interstitial lung disease [Unknown]

NARRATIVE: CASE EVENT DATE: 2010
